FAERS Safety Report 6656591-3 (Version None)
Quarter: 2010Q1

REPORT INFORMATION
  Report Type: 
  Country: None (occurrence: None)
  Receive Date: 20100329
  Receipt Date: 20100319
  Transmission Date: 20100710
  Serious: Yes (Disabling, Other)
  Sender: FDA-Public Use
  Company Number: US-PFIZER INC-2010015706

PATIENT
  Sex: Female
  Weight: 89.8 kg

DRUGS (9)
  1. LIPITOR [Suspect]
     Indication: BLOOD CHOLESTEROL INCREASED
     Dosage: 40 MG, 1X/DAY
     Dates: end: 20090101
  2. FLECTOR [Concomitant]
     Indication: PAIN
     Dosage: 1.3 %, UNK
     Route: 062
  3. VOLTAREN [Concomitant]
     Indication: PAIN
     Dosage: FREQUENCY: 3X/DAY,
  4. CARAFATE [Concomitant]
     Indication: CARDIAC MURMUR
     Dosage: 1 G, AS NEEDED
     Route: 048
  5. IBUPROFEN [Concomitant]
     Indication: PAIN
     Dosage: 800 MG, UNK
  6. LIDODERM [Concomitant]
     Indication: PAIN
     Dosage: UNK
     Route: 062
  7. ACIPHEX [Concomitant]
     Indication: GASTROOESOPHAGEAL REFLUX DISEASE
     Dosage: 20 MG, 1X/DAY
  8. TIZANIDINE [Concomitant]
     Dosage: FREQUENCY: 3X/DAY
  9. ZONISAMIDE [Concomitant]
     Dosage: 100 MG, 3X/DAY

REACTIONS (3)
  - IMPAIRED DRIVING ABILITY [None]
  - INSOMNIA [None]
  - MYALGIA [None]
